FAERS Safety Report 5651967-5 (Version None)
Quarter: 2008Q1

REPORT INFORMATION
  Report Type: 
  Country: None (occurrence: None)
  Receive Date: 20080304
  Receipt Date: 20080220
  Transmission Date: 20080703
  Serious: Yes (Hospitalization)
  Sender: FDA-Public Use
  Company Number: 2007BI025256

PATIENT
  Age: 82 Year
  Sex: Female

DRUGS (1)
  1. AVONEX [Suspect]
     Indication: MULTIPLE SCLEROSIS
     Dates: start: 20020608

REACTIONS (3)
  - DEMENTIA ALZHEIMER'S TYPE [None]
  - FALL [None]
  - HEAD INJURY [None]
